FAERS Safety Report 4647077-6 (Version None)
Quarter: 2005Q2

REPORT INFORMATION
  Report Type: 
  Country: None (occurrence: None)
  Receive Date: 20050331
  Receipt Date: 20050131
  Transmission Date: 20051028
  Serious: No
  Sender: FDA-Public Use
  Company Number: 05P-163-0288896-00

PATIENT
  Age: 61 Year
  Sex: Male
  Weight: 88.4514 kg

DRUGS (9)
  1. HUMIRA [Suspect]
     Indication: RHEUMATOID ARTHRITIS
     Dosage: 40 MG, 1 IN 2 WK, SUBCUTANEOUS
     Route: 058
     Dates: start: 20040618, end: 20041201
  2. DARVOCET [Concomitant]
  3. ACETAMINOPHEN [Concomitant]
  4. CEVIMELINE HYDROCHLORIDE [Concomitant]
  5. ASCORBIC ACID [Concomitant]
  6. TOLTERODINE TARTRATE [Concomitant]
  7. PREDNISONE [Concomitant]
  8. LISINOPRIL [Concomitant]
  9. SIMVASTATIN [Concomitant]

REACTIONS (3)
  - NASAL CONGESTION [None]
  - RASH ERYTHEMATOUS [None]
  - RASH PRURITIC [None]
